FAERS Safety Report 25923567 (Version 1)
Quarter: 2025Q4

REPORT INFORMATION
  Report Type: Report from Study
  Country: US (occurrence: US)
  Receive Date: 20251015
  Receipt Date: 20251015
  Transmission Date: 20260119
  Serious: Yes (Hospitalization, Other)
  Sender: ADAMAS PHARMA
  Company Number: US-ADM-ADM202506-002227

PATIENT
  Age: 72 Year
  Sex: Female

DRUGS (14)
  1. GOCOVRI [Suspect]
     Active Substance: AMANTADINE
     Indication: Dyskinesia
     Dosage: EVERY NIGHT AT BEDTIME FOR 7 DAYS
     Route: 048
     Dates: start: 20250612
  2. GOCOVRI [Suspect]
     Active Substance: AMANTADINE
     Indication: Parkinson^s disease
     Dosage: EVERY NIGHT AT BEDTIME
     Route: 048
     Dates: start: 202506
  3. GOCOVRI [Suspect]
     Active Substance: AMANTADINE
     Dosage: AT BEDTIME
     Route: 048
     Dates: start: 20250612
  4. ALBUTEROL SULFATE [Concomitant]
     Active Substance: ALBUTEROL SULFATE
     Dosage: NOT PROVIDED
  5. ASPIRIN [Concomitant]
     Active Substance: ASPIRIN
     Dosage: 81 MG
  6. BREO ELLIPTA [Concomitant]
     Active Substance: FLUTICASONE FUROATE\VILANTEROL TRIFENATATE
     Dosage: 100-25
  7. CALCIUM [Concomitant]
     Active Substance: CALCIUM
     Dosage: 500MG
  8. CARBIDOPA\LEVODOPA [Concomitant]
     Active Substance: CARBIDOPA\LEVODOPA
     Dosage: EACH DF CONTAINS 25-100MG
  9. COENZYME Q10 [Concomitant]
     Active Substance: DIETARY SUPPLEMENT\UBIDECARENONE
     Dosage: 100MG
  10. Flonase Algy [Concomitant]
     Dosage: 50MCG
  11. WELLBUTRIN XL [Concomitant]
     Active Substance: BUPROPION HYDROCHLORIDE
     Dosage: 300MG
  12. ZOCOR [Concomitant]
     Active Substance: SIMVASTATIN
     Dosage: 20MG
  13. ZOLOFT [Concomitant]
     Active Substance: SERTRALINE HYDROCHLORIDE
     Dosage: 100MG
  14. VITAMIN C [Concomitant]
     Active Substance: ASCORBIC ACID
     Dosage: 500MG

REACTIONS (9)
  - Palpitations [Unknown]
  - Hyperhidrosis [Not Recovered/Not Resolved]
  - Hypotension [Unknown]
  - Nausea [Not Recovered/Not Resolved]
  - Syncope [Not Recovered/Not Resolved]
  - Sleep disorder [Recovered/Resolved]
  - Dry mouth [Not Recovered/Not Resolved]
  - Constipation [Not Recovered/Not Resolved]
  - Nightmare [Recovering/Resolving]
